FAERS Safety Report 10379773 (Version 1)
Quarter: 2014Q1

REPORT INFORMATION
  Report Type: Spontaneous
  Country: US (occurrence: None)
  Receive Date: 20140306
  Receipt Date: 20140306
  Transmission Date: 20141002
  Serious: Yes (Hospitalization, Other)
  Sender: FDA-Public Use
  Company Number: 163-21880-13013328

PATIENT
  Age: 81 Year
  Sex: Female

DRUGS (8)
  1. REVLIMID (LENALIDOMIDE) (10 MILLIGRAM, CAPSULES) [Suspect]
     Indication: MANTLE CELL LYMPHOMA
     Dosage: 10 MG, 21 IN 21 D, PO TEMPORARILY INTERRUPTED
     Route: 048
     Dates: start: 20121001
  2. ACTONEL (RISENDRONATE SODIUM) [Concomitant]
  3. AGGRENOX (ASASANTIN) [Concomitant]
  4. BIOTIN [Concomitant]
  5. CELEXA (CITALOPRAM HYDROBROMIDE) [Concomitant]
  6. CORGARD (NADOLOL) [Concomitant]
  7. DITROPAN XL (OXYBUTYNIN HYDROCHLORIDE) [Concomitant]
  8. PROCHLORPERAZINE MALEATE [Concomitant]

REACTIONS (3)
  - Pneumonia [None]
  - Staphylococcus test [None]
  - Bronchitis [None]
